APPROVED DRUG PRODUCT: DIGOXIN
Active Ingredient: DIGOXIN
Strength: 0.05MG/ML
Dosage Form/Route: ELIXIR;ORAL
Application: N021648 | Product #001 | TE Code: AA
Applicant: HIKMA PHARMACEUTICALS USA INC
Approved: Aug 26, 2004 | RLD: Yes | RS: Yes | Type: RX